FAERS Safety Report 5500132-0 (Version None)
Quarter: 2007Q4

REPORT INFORMATION
  Report Type: 
  Country: None (occurrence: None)
  Receive Date: 20071025
  Receipt Date: 20071005
  Transmission Date: 20080405
  Serious: Yes (Hospitalization)
  Sender: FDA-Public Use
  Company Number: M-07-0890

PATIENT
  Sex: Female

DRUGS (3)
  1. SANDRENA (ESTRADIOL) ORION PHARMA [Suspect]
     Indication: HORMONE REPLACEMENT THERAPY
     Dosage: TOPICAL
     Route: 061
     Dates: start: 20020101, end: 20070419
  2. CAPTOPRIL [Concomitant]
  3. METOPROLOL TARTRATE [Concomitant]

REACTIONS (4)
  - INCISION SITE COMPLICATION [None]
  - OVARIAN CYST [None]
  - PAIN IN EXTREMITY [None]
  - WEIGHT INCREASED [None]
